FAERS Safety Report 14214196 (Version 2)
Quarter: 2017Q4

REPORT INFORMATION
  Report Type: Report from Study
  Country: AR (occurrence: AR)
  Receive Date: 20171122
  Receipt Date: 20171221
  Transmission Date: 20180321
  Serious: Yes (Hospitalization)
  Sender: FDA-Public Use
  Company Number: PHHY2017AR170893

PATIENT
  Sex: Female

DRUGS (4)
  1. DIOVAN [Suspect]
     Active Substance: VALSARTAN
     Indication: TENSION
     Dosage: 2 DF, (VALSARTAN 80, UNITS NOT PROVIDED), QD (10 YEARS AGO APPROX.)
     Route: 065
  2. TEGRETOL [Suspect]
     Active Substance: CARBAMAZEPINE
     Indication: STRESS
  3. DIOVAN D [Suspect]
     Active Substance: HYDROCHLOROTHIAZIDE\VALSARTAN
     Indication: TENSION
     Dosage: 2 DF (HYDROCHLOROTHIAZIDE 12.5 AND VALSARTAN 160 MG), QD (10 YEARS AGO)
     Route: 065
  4. TEGRETOL [Suspect]
     Active Substance: CARBAMAZEPINE
     Indication: DEPRESSION
     Dosage: 1.5 OT, (CARBAMAZEPINE 400 UNITS NOT PROVIDED), QD (10 YEARS AGO APPROX.)
     Route: 065

REACTIONS (11)
  - Nocturia [Not Recovered/Not Resolved]
  - Anger [Unknown]
  - Wrong technique in product usage process [Not Recovered/Not Resolved]
  - Blood pressure increased [Not Recovered/Not Resolved]
  - Anaemia [Unknown]
  - Thyroid mass [Not Recovered/Not Resolved]
  - Blood cholesterol abnormal [Unknown]
  - Insomnia [Not Recovered/Not Resolved]
  - Muscle spasms [Unknown]
  - Inappropriate schedule of drug administration [Unknown]
  - Product use in unapproved indication [Not Recovered/Not Resolved]
